FAERS Safety Report 13047788 (Version 1)
Quarter: 2016Q4

REPORT INFORMATION
  Report Type: Spontaneous
  Country: US (occurrence: US)
  Receive Date: 20161220
  Receipt Date: 20161220
  Transmission Date: 20170207
  Serious: No
  Sender: FDA-Public Use
  Company Number: US-ALLERGAN-1669370US

PATIENT
  Age: 22 Year
  Sex: Female
  Weight: 96.43 kg

DRUGS (1)
  1. LILETTA [Suspect]
     Active Substance: LEVONORGESTREL
     Indication: PRODUCT USED FOR UNKNOWN INDICATION
     Dosage: 52 MG
     Route: 015
     Dates: start: 20160919, end: 20160919

REACTIONS (2)
  - Procedural haemorrhage [Unknown]
  - Procedural pain [Unknown]

NARRATIVE: CASE EVENT DATE: 20160919
